FAERS Safety Report 9865706 (Version 2)
Quarter: 2014Q1

REPORT INFORMATION
  Report Type: Spontaneous
  Country: US (occurrence: US)
  Receive Date: 20140203
  Receipt Date: 20140203
  Transmission Date: 20141002
  Serious: No
  Sender: FDA-Public Use
  Company Number: US-ALLERGAN-1310184US

PATIENT
  Age: 82 Year
  Sex: Female

DRUGS (4)
  1. RESTASIS [Suspect]
     Indication: DRY EYE
     Dosage: 2 GTT, QHS
     Route: 047
  2. BLOOD PRESSURE MEDICATION [Concomitant]
     Indication: HYPERTENSION
     Dosage: UNK
  3. CHOLESTEROL MEDICATION [Concomitant]
     Indication: BLOOD CHOLESTEROL INCREASED
     Dosage: UNK
  4. MEDICATION FOR REFLUX [Concomitant]
     Indication: GASTROOESOPHAGEAL REFLUX DISEASE
     Dosage: UNK

REACTIONS (2)
  - Inappropriate schedule of drug administration [Unknown]
  - Eye irritation [Not Recovered/Not Resolved]
